FAERS Safety Report 18241505 (Version 1)
Quarter: 2020Q3

REPORT INFORMATION
  Report Type: Spontaneous
  Country: US (occurrence: US)
  Receive Date: 20200908
  Receipt Date: 20200908
  Transmission Date: 20201103
  Serious: No
  Sender: FDA-Public Use
  Company Number: US-LEO PHARMA-331445

PATIENT
  Sex: Male

DRUGS (4)
  1. PICATO [Suspect]
     Active Substance: INGENOL MEBUTATE
     Route: 061
     Dates: start: 2017
  2. PICATO [Suspect]
     Active Substance: INGENOL MEBUTATE
     Indication: PRODUCT USED FOR UNKNOWN INDICATION
     Route: 061
  3. PICATO [Suspect]
     Active Substance: INGENOL MEBUTATE
     Route: 061
     Dates: start: 2018
  4. PICATO [Suspect]
     Active Substance: INGENOL MEBUTATE
     Route: 061
     Dates: start: 2016

REACTIONS (3)
  - Application site exfoliation [Recovered/Resolved]
  - Application site erythema [Recovered/Resolved]
  - Inappropriate schedule of product administration [Unknown]
